FAERS Safety Report 25792672 (Version 1)
Quarter: 2025Q3

REPORT INFORMATION
  Report Type: Spontaneous
  Country: EU (occurrence: EU)
  Receive Date: 20250911
  Receipt Date: 20250911
  Transmission Date: 20251021
  Serious: Yes (Life-Threatening)
  Sender: AMGEN
  Company Number: EU-BEH-2025217933

PATIENT
  Age: 26 Year
  Sex: Male

DRUGS (1)
  1. TAVNEOS [Suspect]
     Active Substance: AVACOPAN
     Indication: Transplant
     Route: 065

REACTIONS (1)
  - Off label use [Unknown]
